FAERS Safety Report 17963693 (Version 11)
Quarter: 2022Q1

REPORT INFORMATION
  Report Type: Spontaneous
  Country: GB (occurrence: GB)
  Receive Date: 20200630
  Receipt Date: 20220203
  Transmission Date: 20220423
  Serious: Yes (Other)
  Sender: FDA-Public Use
  Company Number: GB-EMA-DD-20200622-BHARDWAJ_R-103805

PATIENT
  Age: 58 Year
  Sex: Male
  Weight: 91 kg

DRUGS (29)
  1. LAMIVUDINE [Suspect]
     Active Substance: LAMIVUDINE
     Indication: Product used for unknown indication
     Dosage: 300 MG, QD(300 MILLIGRAM, ONCE A DAY)
     Route: 065
  2. LAMIVUDINE [Suspect]
     Active Substance: LAMIVUDINE
     Dosage: 1 DF, QD
     Route: 048
  3. LAMIVUDINE [Suspect]
     Active Substance: LAMIVUDINE
     Dosage: 1 DF, QD
     Route: 048
  4. LAMIVUDINE [Suspect]
     Active Substance: LAMIVUDINE
     Dosage: 300 MG, QD (300 MILLIGRAM, QD  )
     Route: 065
  5. VIRAMUNE [Suspect]
     Active Substance: NEVIRAPINE
     Indication: Product used for unknown indication
     Dosage: 200 MILLIGRAM, QD (200 MILLIGRAM, ONCE A DAY)
     Route: 065
  6. VIRAMUNE [Suspect]
     Active Substance: NEVIRAPINE
     Dosage: 1 DF, QD, 1 DOSAGE FORM, ONCE A DAY
     Route: 065
  7. VIRAMUNE [Suspect]
     Active Substance: NEVIRAPINE
     Dosage: 200 MG, QD(200 MILLIGRAM, QD (200 MILLIGRAM, ONCE A DAY))
     Route: 065
  8. ISENTRESS [Suspect]
     Active Substance: RALTEGRAVIR POTASSIUM
     Indication: Product used for unknown indication
     Dosage: 400 MILLIGRAM, QD (1 ANTI-XA IU/ML, QD)
     Route: 048
  9. ISENTRESS [Suspect]
     Active Substance: RALTEGRAVIR POTASSIUM
     Dosage: 1 DF, QD(1 DOSAGE FORM, QD, STRENGTH: 400 (UNITS NOT PROVIDED), ONCE DAILY)
     Route: 048
  10. ISENTRESS [Suspect]
     Active Substance: RALTEGRAVIR POTASSIUM
     Dosage: 2 DF, QD (2 ANTI-XA IU/ML, QD)
     Route: 065
  11. RALTEGRAVIR POTASSIUM [Suspect]
     Active Substance: RALTEGRAVIR POTASSIUM
     Indication: Product used for unknown indication
     Dosage: 400 MG, QD (1 ANTI-XA IU/ML, QD)
     Route: 065
  12. RALTEGRAVIR POTASSIUM [Suspect]
     Active Substance: RALTEGRAVIR POTASSIUM
     Dosage: 1 DF, QD(1 DOSAGE FORM, QD, STRENGTH: 400 (UNITS NOT PROVIDED),)
     Route: 048
  13. RALTEGRAVIR POTASSIUM [Suspect]
     Active Substance: RALTEGRAVIR POTASSIUM
     Dosage: 1 DF, QD(2 DF, QD, (ONCE A DAY))
     Route: 048
  14. RALTEGRAVIR POTASSIUM [Suspect]
     Active Substance: RALTEGRAVIR POTASSIUM
     Dosage: 2 DF, QD (2 DOSAGE FORM, ONCE A DAY)
     Route: 065
  15. RALTEGRAVIR POTASSIUM [Suspect]
     Active Substance: RALTEGRAVIR POTASSIUM
     Dosage: 1 DF, QD(1 DOSAGE FORM; STRENGTH: 400 (UNITS NOT PROVIDED), ONCE)
     Route: 048
  16. RALTEGRAVIR POTASSIUM [Suspect]
     Active Substance: RALTEGRAVIR POTASSIUM
     Dosage: 2 DF, QD(2 DF, QD (2 ANTI-XA IU/ML, QD))
     Route: 048
  17. RALTEGRAVIR [Suspect]
     Active Substance: RALTEGRAVIR
     Indication: Product used for unknown indication
     Dosage: 2 DF, QD (2 DOSAGE FORM, QD)
     Route: 065
  18. RALTEGRAVIR [Suspect]
     Active Substance: RALTEGRAVIR
     Dosage: 1 DF, QD (1 DOSAGE FORM, QD)
     Route: 065
  19. RALTEGRAVIR [Suspect]
     Active Substance: RALTEGRAVIR
     Indication: Product used for unknown indication
     Dosage: 1 DF (1 DOSAGE FORM)
     Route: 065
  20. RALTEGRAVIR [Suspect]
     Active Substance: RALTEGRAVIR
     Dosage: 2 DF, 2 DF, QD (2 ANTI-XA IU/ML, QD)
     Route: 065
  21. RALTEGRAVIR [Suspect]
     Active Substance: RALTEGRAVIR
     Dosage: 400 MG, QD (1 ANTI-XA IU/ML, QD)
     Route: 048
  22. RALTEGRAVIR [Suspect]
     Active Substance: RALTEGRAVIR
     Indication: Product used for unknown indication
     Dosage: 2 DF, QD, 2 DOSAGE FORM, ONCE A DAY
     Route: 065
  23. RALTEGRAVIR [Suspect]
     Active Substance: RALTEGRAVIR
     Dosage: 1 DF, QD, 1 DOSAGE FORM, ONCE A DAY
     Route: 065
  24. RALTEGRAVIR [Suspect]
     Active Substance: RALTEGRAVIR
     Indication: Product used for unknown indication
     Dosage: UNK
     Route: 065
  25. RALTEGRAVIR [Suspect]
     Active Substance: RALTEGRAVIR
     Dosage: 2 DF, QD
     Route: 065
  26. NEVIRAPINE [Suspect]
     Active Substance: NEVIRAPINE
     Indication: Product used for unknown indication
     Dosage: UNK, QD
     Route: 065
  27. NEVIRAPINE [Suspect]
     Active Substance: NEVIRAPINE
     Dosage: 200 MG, QD
     Route: 065
  28. NEVIRAPINE [Suspect]
     Active Substance: NEVIRAPINE
     Dosage: UNK, QD
     Route: 065
  29. RALTEGRAVIR POTASSIUM [Suspect]
     Active Substance: RALTEGRAVIR POTASSIUM
     Indication: Product used for unknown indication
     Dosage: 400 MG, QD (400 MG, QD (1 ANTI-XA IU/ML, QD)
     Route: 065

REACTIONS (8)
  - Hallucination [Unknown]
  - Delirium [Unknown]
  - Asthenia [Unknown]
  - Suspected COVID-19 [Unknown]
  - Fatigue [Unknown]
  - Cough [Unknown]
  - Pyrexia [Unknown]
  - Malaise [Unknown]

NARRATIVE: CASE EVENT DATE: 20200101
